FAERS Safety Report 4463263-2 (Version None)
Quarter: 2004Q3

REPORT INFORMATION
  Report Type: 
  Country: None (occurrence: None)
  Receive Date: 20040930
  Receipt Date: 20040924
  Transmission Date: 20050211
  Serious: Yes (Death)
  Sender: FDA-Public Use
  Company Number: FR-GLAXOSMITHKLINE-B0346210A

PATIENT
  Age: 42 Year
  Sex: Female

DRUGS (5)
  1. AUGMENTIN '125' [Suspect]
     Indication: INFECTION PROPHYLAXIS
     Dosage: 1G PER DAY
     Route: 042
     Dates: start: 20040915, end: 20040917
  2. SOLUPRED [Suspect]
     Indication: PROPHYLAXIS
     Route: 042
     Dates: start: 20040915, end: 20040917
  3. ACETAMINOPHEN [Suspect]
     Indication: PAIN PROPHYLAXIS
     Route: 065
     Dates: start: 20040915, end: 20040917
  4. GENTAMYCIN SULFATE [Suspect]
     Indication: INFECTION PROPHYLAXIS
     Route: 042
     Dates: start: 20040915, end: 20040917
  5. ANESTHETICS [Suspect]
     Route: 065
     Dates: start: 20040914, end: 20040914

REACTIONS (3)
  - DEATH [None]
  - PYREXIA [None]
  - SKIN DESQUAMATION [None]
